FAERS Safety Report 6379210-2 (Version None)
Quarter: 2009Q3

REPORT INFORMATION
  Report Type: 
  Country: None (occurrence: None)
  Receive Date: 20090923
  Receipt Date: 20090914
  Transmission Date: 20100115
  Serious: Yes (Hospitalization)
  Sender: FDA-Public Use
  Company Number: 2009SP018943

PATIENT
  Age: 46 Year
  Sex: Female
  Weight: 86.1834 kg

DRUGS (6)
  1. NUVARING [Suspect]
     Indication: MENOPAUSAL SYMPTOMS
     Dates: start: 20040826, end: 20051201
  2. NUVARING [Suspect]
     Indication: OVARIAN CYST
     Dates: start: 20040826, end: 20051201
  3. MIDRIN (CON.) [Concomitant]
  4. ENTEX LA (CON.) [Concomitant]
  5. VALTREX (CON.) [Concomitant]
  6. OXYCODONE (CON.) [Concomitant]

REACTIONS (7)
  - BLOOD CHOLESTEROL INCREASED [None]
  - CHEST PAIN [None]
  - DYSPNOEA EXERTIONAL [None]
  - HYPERCOAGULATION [None]
  - PALPITATIONS [None]
  - PULMONARY THROMBOSIS [None]
  - SYNCOPE [None]
